FAERS Safety Report 15306742 (Version 4)
Quarter: 2023Q4

REPORT INFORMATION
  Report Type: Spontaneous
  Country: IT (occurrence: IT)
  Receive Date: 20180822
  Receipt Date: 20231121
  Transmission Date: 20240110
  Serious: Yes (Other)
  Sender: FDA-Public Use
  Company Number: PHHY2018IT075935

PATIENT
  Age: 63 Year
  Sex: Female
  Weight: 62 kg

DRUGS (45)
  1. LAPATINIB [Suspect]
     Active Substance: LAPATINIB
     Indication: Breast cancer
     Dosage: 250 MG (OTHER)
     Route: 048
     Dates: start: 20171219, end: 20180108
  2. LAPATINIB [Suspect]
     Active Substance: LAPATINIB
     Dosage: 250 MG, TID
     Route: 048
     Dates: start: 20180223, end: 20180302
  3. LAPATINIB [Suspect]
     Active Substance: LAPATINIB
     Dosage: 250 MG, Q3W (FOUR TIMES A DAY)
     Route: 048
     Dates: start: 20180303, end: 201803
  4. LAPATINIB [Suspect]
     Active Substance: LAPATINIB
     Dosage: 250 MG, Q3W (TWICE A DAY)
     Route: 048
     Dates: start: 20180216, end: 20180222
  5. LAPATINIB [Suspect]
     Active Substance: LAPATINIB
     Dosage: 250 MG (0.3 DAY)
     Route: 048
     Dates: start: 20180330, end: 20180720
  6. LAPATINIB [Suspect]
     Active Substance: LAPATINIB
     Dosage: 250 MG, QID
     Route: 048
     Dates: start: 201803, end: 201803
  7. PERTUZUMAB [Suspect]
     Active Substance: PERTUZUMAB
     Indication: Breast cancer metastatic
     Dosage: 420 MG, Q3W (FREQUENCY: Q3W - EVERY 3 WEEKS MOST RECENT DOSE PRIOR TO THE EVENT: 24 FEB 2017)
     Route: 042
     Dates: start: 20170131, end: 20170131
  8. PERTUZUMAB [Suspect]
     Active Substance: PERTUZUMAB
     Indication: Breast cancer
     Dosage: 2520 MG, QW, (840 MG, TIW)
     Route: 042
     Dates: start: 20170131, end: 20170131
  9. PERTUZUMAB [Suspect]
     Active Substance: PERTUZUMAB
     Dosage: 420 MG, Q3W (8 MG/KG)
     Route: 042
     Dates: start: 20170224, end: 20171128
  10. PERTUZUMAB [Suspect]
     Active Substance: PERTUZUMAB
     Dosage: 1260 MG, QW, (420 MG, TIW) (MOST RECENT DOSE PRIOR TO EVENT: 24 FEB 2017, MAINTENANCE DOSE)
     Route: 042
  11. PACLITAXEL [Suspect]
     Active Substance: PACLITAXEL
     Indication: Breast cancer metastatic
     Dosage: 85 MG/M2, QW (FREQUENCY: WEEKLYMOST RECENT DOSES PRIOR TO THE EVENT: 10 FEB 2017, 18 APR 2017, 26 AP
     Route: 042
     Dates: start: 20170131
  12. PACLITAXEL [Suspect]
     Active Substance: PACLITAXEL
     Indication: Breast cancer
     Dosage: 110 MG, QW (MOST RECENT DOSE PRIOR TO EVENT : 24 FEB 201780 MG/M2)
     Route: 042
     Dates: start: 20170131
  13. PACLITAXEL [Suspect]
     Active Substance: PACLITAXEL
     Dosage: 85 MG/M2, QW
     Route: 042
     Dates: start: 20170418
  14. PACLITAXEL [Suspect]
     Active Substance: PACLITAXEL
     Dosage: 110 MG, QW
     Route: 042
     Dates: start: 20170210
  15. PACLITAXEL [Suspect]
     Active Substance: PACLITAXEL
     Dosage: 85 MG/M2, QW
     Route: 042
     Dates: start: 20170705
  16. PACLITAXEL [Suspect]
     Active Substance: PACLITAXEL
     Dosage: 110 MG/M2, QW
     Route: 042
     Dates: start: 20170210
  17. PACLITAXEL [Suspect]
     Active Substance: PACLITAXEL
     Dosage: 80 MG/M2
     Route: 042
     Dates: start: 20170224
  18. PACLITAXEL [Suspect]
     Active Substance: PACLITAXEL
     Dosage: 110 MG/M2, QW (85MG/M2)
     Route: 042
     Dates: start: 20170131
  19. PACLITAXEL [Suspect]
     Active Substance: PACLITAXEL
     Dosage: 95 MG, QW
     Route: 048
     Dates: start: 20170426, end: 20170628
  20. AROMASIN [Suspect]
     Active Substance: EXEMESTANE
     Indication: Breast cancer
     Dosage: 25 MG, QD
     Route: 048
     Dates: start: 20170726
  21. TRASTUZUMAB [Suspect]
     Active Substance: TRASTUZUMAB
     Indication: Breast cancer metastatic
     Dosage: 8 MG/KG, Q3W (FREQUENCY: Q3W - EVERY 3 WEEKS MOST RECENT DOSE PRIOR TO THE EVENT: 24 FEB 2017)
     Route: 042
     Dates: start: 20170131
  22. TRASTUZUMAB [Suspect]
     Active Substance: TRASTUZUMAB
     Indication: Breast cancer
     Dosage: 8 MG/KG, Q3W
     Route: 042
     Dates: start: 20170131, end: 20170731
  23. TRASTUZUMAB [Suspect]
     Active Substance: TRASTUZUMAB
     Dosage: 18 MG/KG, QW, (6 MG/KG, TIW) (MOST RECENT DOSE PRIOR TO THE EVENT: 24 FEB 2017, MAINTENANCE DOSE)
     Route: 042
     Dates: start: 20180811, end: 20181009
  24. TRASTUZUMAB [Suspect]
     Active Substance: TRASTUZUMAB
     Dosage: 600 MG, Q3W
     Route: 042
     Dates: start: 20180727, end: 20180817
  25. TRASTUZUMAB [Suspect]
     Active Substance: TRASTUZUMAB
     Dosage: 6 MG/KG, Q3W
     Route: 042
     Dates: start: 20170224, end: 20171128
  26. EXEMESTANE [Suspect]
     Active Substance: EXEMESTANE
     Indication: Breast cancer
     Dosage: 25 MG, QD
     Route: 048
     Dates: start: 20170726
  27. VINORELBINE [Suspect]
     Active Substance: VINORELBINE TARTRATE
     Indication: Breast cancer
     Dosage: 180 MG/M2, QW (60 MG/M2, TIW)
     Route: 048
     Dates: start: 20180727, end: 20180817
  28. VINORELBINE [Suspect]
     Active Substance: VINORELBINE TARTRATE
     Dosage: 80 MG
     Route: 048
     Dates: end: 20181106
  29. VINORELBINE [Suspect]
     Active Substance: VINORELBINE TARTRATE
     Dosage: 80 MG, Q3W
     Route: 048
     Dates: end: 20180911
  30. CAPECITABINE [Suspect]
     Active Substance: CAPECITABINE
     Indication: Breast cancer
     Dosage: 1500 MG  (0.5 DAY)
     Route: 048
     Dates: start: 20171220, end: 20180108
  31. CAPECITABINE [Suspect]
     Active Substance: CAPECITABINE
     Dosage: 1500 MG, Q3W (FOR 14 DAYS EVERY)
     Route: 048
     Dates: start: 20180119, end: 20180709
  32. AMBROXOL HYDROCHLORIDE [Concomitant]
     Active Substance: AMBROXOL HYDROCHLORIDE
     Indication: Product used for unknown indication
     Dosage: UNK
     Route: 065
     Dates: start: 20170702, end: 20170705
  33. XANAX [Concomitant]
     Active Substance: ALPRAZOLAM
     Indication: Product used for unknown indication
     Dosage: UNK
     Route: 065
  34. CHOLECALCIFEROL [Concomitant]
     Active Substance: CHOLECALCIFEROL
     Indication: Product used for unknown indication
     Dosage: UNK
     Route: 065
     Dates: start: 20170726
  35. GABAPENTIN [Concomitant]
     Active Substance: GABAPENTIN
     Indication: Product used for unknown indication
     Dosage: UNK (STRENGTH 100, 300, 400 MG)
     Route: 065
  36. ZOFRAN [Concomitant]
     Active Substance: ONDANSETRON HYDROCHLORIDE
     Indication: Product used for unknown indication
     Dosage: UNK (STRENGTH 4/16/8 MG)
     Route: 065
  37. BETAMETHASONE SODIUM PHOSPHATE [Concomitant]
     Active Substance: BETAMETHASONE SODIUM PHOSPHATE
     Indication: Product used for unknown indication
     Dosage: UNK
     Route: 065
  38. BECLOMETHASONE DIPROPIONATE [Concomitant]
     Active Substance: BECLOMETHASONE DIPROPIONATE
     Indication: Product used for unknown indication
     Dosage: UNK
     Route: 065
     Dates: start: 20170702, end: 20170705
  39. AMLODIPINE BESYLATE\OLMESARTAN MEDOXOMIL [Concomitant]
     Active Substance: AMLODIPINE BESYLATE\OLMESARTAN MEDOXOMIL
     Indication: Product used for unknown indication
     Dosage: UNK
     Route: 065
     Dates: start: 20171004
  40. IMODIUM [Concomitant]
     Active Substance: LOPERAMIDE HYDROCHLORIDE
     Indication: Product used for unknown indication
     Dosage: UNK
     Route: 065
     Dates: start: 20170705, end: 20170821
  41. DENOSUMAB [Concomitant]
     Active Substance: DENOSUMAB
     Indication: Product used for unknown indication
     Dosage: UNK
     Route: 065
     Dates: start: 20170823, end: 20180727
  42. RACECADOTRIL [Concomitant]
     Active Substance: RACECADOTRIL
     Indication: Diarrhoea
     Dosage: UNK
     Route: 065
     Dates: start: 20170705, end: 20170726
  43. MEDROL [Concomitant]
     Active Substance: METHYLPREDNISOLONE
     Indication: Product used for unknown indication
     Dosage: UNK
     Route: 065
     Dates: start: 20180725, end: 20180731
  44. SERTRALINE [Concomitant]
     Active Substance: SERTRALINE HYDROCHLORIDE
     Indication: Product used for unknown indication
     Dosage: UNK
     Route: 065
  45. BECLOMETHASONE DIPROPIONATE [Concomitant]
     Active Substance: BECLOMETHASONE DIPROPIONATE
     Indication: Product used for unknown indication
     Dosage: UNK
     Route: 065
     Dates: start: 20170702, end: 20170705

REACTIONS (12)
  - Hypokalaemia [Recovered/Resolved]
  - Hypokalaemia [Recovered/Resolved]
  - Hypokalaemia [Recovered/Resolved]
  - Hypokalaemia [Recovered/Resolved]
  - Diarrhoea [Recovered/Resolved]
  - Diarrhoea [Recovered/Resolved]
  - Diarrhoea [Recovered/Resolved]
  - Paraesthesia [Recovered/Resolved]
  - Leukopenia [Recovered/Resolved]
  - Cough [Recovered/Resolved]
  - Malaise [Recovered/Resolved]
  - Asthenia [Recovered/Resolved]

NARRATIVE: CASE EVENT DATE: 20170418
